FAERS Safety Report 10519129 (Version 1)
Quarter: 2014Q4

REPORT INFORMATION
  Report Type: Spontaneous
  Country: US (occurrence: US)
  Receive Date: 20141015
  Receipt Date: 20141015
  Transmission Date: 20150528
  Serious: Yes (Hospitalization)
  Sender: FDA-Public Use
  Company Number: US-GLAXOSMITHKLINE-US2014GSK005885

PATIENT
  Age: 45 Year
  Sex: Male

DRUGS (2)
  1. SORIATANE [Suspect]
     Active Substance: ACITRETIN
     Indication: SKIN DISORDER
     Dosage: 10 MG, UNK
     Dates: start: 2004
  2. SORIATANE [Suspect]
     Active Substance: ACITRETIN
     Dosage: 25 MG, UNK
     Dates: start: 2004

REACTIONS (2)
  - Laceration [Unknown]
  - Skin disorder [Unknown]

NARRATIVE: CASE EVENT DATE: 201409
